FAERS Safety Report 5766546-9 (Version None)
Quarter: 2008Q2

REPORT INFORMATION
  Report Type: 
  Country: None (occurrence: None)
  Receive Date: 20080612
  Receipt Date: 20080530
  Transmission Date: 20081010
  Serious: Yes (Hospitalization)
  Sender: FDA-Public Use
  Company Number: FR-ROCHE-567979

PATIENT
  Age: 72 Year
  Sex: Female

DRUGS (12)
  1. RIVOTRIL [Suspect]
     Indication: DRUG USE FOR UNKNOWN INDICATION
     Route: 048
     Dates: start: 20080311, end: 20080327
  2. COLCHIMAX [Suspect]
     Indication: GOUT
     Route: 048
     Dates: start: 20080311, end: 20080314
  3. COLCHIMAX [Suspect]
     Route: 048
     Dates: start: 20080311, end: 20080314
  4. COLCHIMAX [Suspect]
     Route: 048
     Dates: start: 20080311, end: 20080314
  5. COLCHIMAX [Suspect]
     Route: 048
     Dates: start: 20080311, end: 20080314
  6. COKENZEN [Concomitant]
  7. COKENZEN [Concomitant]
  8. GLUCOPHAGE [Concomitant]
  9. GLICLAZIDE [Concomitant]
  10. LERCAN [Concomitant]
  11. DAFLON [Concomitant]
  12. DAFLON [Concomitant]

REACTIONS (3)
  - EOSINOPHILIA [None]
  - PRURITUS [None]
  - TOXIC SKIN ERUPTION [None]
